FAERS Safety Report 10606853 (Version 1)
Quarter: 2014Q4

REPORT INFORMATION
  Report Type: Spontaneous
  Country: US (occurrence: None)
  Receive Date: 20141124
  Receipt Date: 20141124
  Transmission Date: 20150529
  Serious: Yes (Death, Hospitalization)
  Sender: FDA-Public Use
  Company Number: None

PATIENT
  Age: 3 Year
  Sex: Female
  Weight: 17.8 kg

DRUGS (6)
  1. CYTARABINE. [Suspect]
     Active Substance: CYTARABINE
     Dates: end: 20141031
  2. VINCRISTINE SULFATE. [Suspect]
     Active Substance: VINCRISTINE SULFATE
     Dates: end: 20141031
  3. METHOTREXATE [Suspect]
     Active Substance: METHOTREXATE
     Dates: end: 20141031
  4. HYDROCORTISONE. [Suspect]
     Active Substance: HYDROCORTISONE
     Dates: end: 20141031
  5. MERCAPTOPURINE. [Suspect]
     Active Substance: MERCAPTOPURINE
     Dates: end: 20141115
  6. PREDNISONE. [Suspect]
     Active Substance: PREDNISONE
     Dates: end: 20141104

REACTIONS (8)
  - Bronchopneumonia [None]
  - Pericardial effusion [None]
  - Pulse abnormal [None]
  - Pertussis [None]
  - Respiratory tract infection [None]
  - Respiratory distress [None]
  - Tachycardia [None]
  - Pleural effusion [None]

NARRATIVE: CASE EVENT DATE: 20141014
